FAERS Safety Report 18290611 (Version 2)
Quarter: 2020Q3

REPORT INFORMATION
  Report Type: Spontaneous
  Country: US (occurrence: US)
  Receive Date: 20200921
  Receipt Date: 20200924
  Transmission Date: 20201103
  Serious: Yes (Other)
  Sender: FDA-Public Use
  Company Number: US-ALLERGAN-2035208US

PATIENT
  Sex: Female

DRUGS (10)
  1. PERCOCET [Suspect]
     Active Substance: ACETAMINOPHEN\OXYCODONE HYDROCHLORIDE
     Indication: HIP ARTHROPLASTY
     Dosage: UNK
  2. PERCOCET [Suspect]
     Active Substance: ACETAMINOPHEN\OXYCODONE HYDROCHLORIDE
     Indication: BACK INJURY
  3. OXYCODONE [Suspect]
     Active Substance: OXYCODONE
     Indication: BACK INJURY
  4. HYDROCODONE [Suspect]
     Active Substance: HYDROCODONE
     Indication: HIP ARTHROPLASTY
  5. PERCODAN [Suspect]
     Active Substance: ASPIRIN\OXYCODONE HYDROCHLORIDE
     Indication: BACK INJURY
  6. PERCODAN [Suspect]
     Active Substance: ASPIRIN\OXYCODONE HYDROCHLORIDE
     Indication: HIP ARTHROPLASTY
  7. NORCO [Suspect]
     Active Substance: ACETAMINOPHEN\HYDROCODONE BITARTRATE
     Indication: HIP ARTHROPLASTY
  8. OXYCODONE [Suspect]
     Active Substance: OXYCODONE
     Indication: HIP ARTHROPLASTY
  9. HYDROCODONE [Suspect]
     Active Substance: HYDROCODONE
     Indication: BACK INJURY
  10. NORCO [Suspect]
     Active Substance: ACETAMINOPHEN\HYDROCODONE BITARTRATE
     Indication: BACK INJURY
     Dosage: UNK

REACTIONS (7)
  - Fall [Unknown]
  - Intentional self-injury [Unknown]
  - Adverse event [Unknown]
  - Surgery [Unknown]
  - Confusional state [Unknown]
  - Mental disorder [Unknown]
  - Drug tolerance increased [Unknown]
